FAERS Safety Report 14614213 (Version 1)
Quarter: 2018Q1

REPORT INFORMATION
  Report Type: Spontaneous
  Country: US (occurrence: US)
  Receive Date: 20180308
  Receipt Date: 20180308
  Transmission Date: 20180509
  Serious: Yes (Death)
  Sender: FDA-Public Use
  Company Number: US-WEST-WARD PHARMACEUTICALS CORP.-US-H14001-18-01700

PATIENT

DRUGS (6)
  1. PREDNISONE. [Suspect]
     Active Substance: PREDNISONE
     Indication: ACUTE LYMPHOCYTIC LEUKAEMIA
     Route: 048
  2. URSODIOL. [Concomitant]
     Active Substance: URSODIOL
     Indication: ACUTE LYMPHOCYTIC LEUKAEMIA
     Route: 058
  3. METHOTREXATE. [Suspect]
     Active Substance: METHOTREXATE
     Indication: ACUTE LYMPHOCYTIC LEUKAEMIA
     Route: 048
  4. PEGFILGRASTIM [Concomitant]
     Active Substance: PEGFILGRASTIM
     Indication: ACUTE LYMPHOCYTIC LEUKAEMIA
     Route: 058
  5. 6-MERCAPTOPURINE [Suspect]
     Active Substance: MERCAPTOPURINE
     Indication: ACUTE LYMPHOCYTIC LEUKAEMIA
     Route: 048
  6. ONCOVIN [Suspect]
     Active Substance: VINCRISTINE SULFATE
     Indication: ACUTE LYMPHOCYTIC LEUKAEMIA
     Route: 042

REACTIONS (2)
  - Venoocclusive disease [Unknown]
  - Sepsis [Fatal]
